FAERS Safety Report 23742091 (Version 2)
Quarter: 2024Q2

REPORT INFORMATION
  Report Type: Report from Study
  Country: AU (occurrence: AU)
  Receive Date: 20240415
  Receipt Date: 20240624
  Transmission Date: 20240716
  Serious: Yes (Hospitalization, Other)
  Sender: FDA-Public Use
  Company Number: AU-GILEAD-2024-0668864

PATIENT
  Age: 54 Year
  Sex: Female

DRUGS (7)
  1. TENOFOVIR DISOPROXIL FUMARATE [Suspect]
     Active Substance: TENOFOVIR DISOPROXIL FUMARATE
     Indication: Chronic hepatitis B
     Dosage: 300 MG, Q3DAYS
     Route: 065
  2. MYCOPHENOLIC ACID [Concomitant]
     Active Substance: MYCOPHENOLIC ACID
  3. PREDNISOLONE [Concomitant]
     Active Substance: PREDNISOLONE
  4. MIRTAZAPINE [Concomitant]
     Active Substance: MIRTAZAPINE
  5. PYRIDOXINE [Concomitant]
     Active Substance: PYRIDOXINE
  6. HYDROMORPHONE [Concomitant]
     Active Substance: HYDROMORPHONE
  7. METHADONE [Concomitant]
     Active Substance: METHADONE HYDROCHLORIDE

REACTIONS (7)
  - Pancreatitis [Unknown]
  - Abdominal abscess [Unknown]
  - Pancreatic carcinoma [Unknown]
  - Renal impairment [Unknown]
  - Glucose urine [Unknown]
  - Protein urine [Unknown]
  - Drug resistance [Unknown]
